FAERS Safety Report 9500758 (Version 1)
Quarter: 2013Q3

REPORT INFORMATION
  Report Type: Spontaneous
  Country: US (occurrence: US)
  Receive Date: 20130905
  Receipt Date: 20130905
  Transmission Date: 20140515
  Serious: Yes (Other)
  Sender: FDA-Public Use
  Company Number: US-ELI_LILLY_AND_COMPANY-US201308009400

PATIENT
  Sex: Female

DRUGS (4)
  1. EVISTA [Suspect]
     Indication: NEOPLASM PROPHYLAXIS
     Dosage: UNK, ONCE DAILY
     Dates: start: 20100701
  2. EVISTA [Suspect]
     Indication: OSTEOPENIA
  3. LEVOXYL [Concomitant]
  4. ESTRACE [Concomitant]

REACTIONS (5)
  - Breast hyperplasia [Unknown]
  - Migraine [Unknown]
  - Musculoskeletal stiffness [Unknown]
  - Hypotension [Unknown]
  - Incorrect drug administration duration [Unknown]
